FAERS Safety Report 9147458 (Version 2)
Quarter: 2013Q1

REPORT INFORMATION
  Report Type: Spontaneous
  Country: PL (occurrence: PL)
  Receive Date: 20130307
  Receipt Date: 20130321
  Transmission Date: 20140127
  Serious: Yes (Other)
  Sender: FDA-Public Use
  Company Number: PL-GILEAD-2013-0071015

PATIENT
  Age: 26 Year
  Sex: Female

DRUGS (2)
  1. TENOFOVIR DISOPROXIL FUMARATE [Suspect]
     Indication: HEPATITIS B
     Dosage: UNK
     Dates: start: 2010, end: 2012
  2. ENTECAVIR [Suspect]
     Indication: HEPATITIS B
     Dosage: UNK
     Dates: end: 2012

REACTIONS (1)
  - Agranulocytosis [Unknown]
